FAERS Safety Report 9541621 (Version 1)
Quarter: 2013Q2

REPORT INFORMATION
  Report Type: Spontaneous
  Country: US (occurrence: None)
  Receive Date: 20130524
  Receipt Date: 20130524
  Transmission Date: 20140414
  Serious: No
  Sender: FDA-Public Use
  Company Number: PHEH2012US023733

PATIENT
  Age: 31 Year
  Sex: Female
  Weight: 102 kg

DRUGS (1)
  1. GILENYA (FINGOLIMOD) [Suspect]
     Indication: MULTIPLE SCLEROSIS
     Route: 048
     Dates: start: 20121130

REACTIONS (5)
  - Headache [None]
  - Back pain [None]
  - Sluggishness [None]
  - Fatigue [None]
  - Hypertension [None]
